FAERS Safety Report 7280386-3 (Version None)
Quarter: 2011Q1

REPORT INFORMATION
  Report Type: 
  Country: None (occurrence: None)
  Receive Date: 20110208
  Receipt Date: 20110131
  Transmission Date: 20110831
  Serious: Yes (Disabling)
  Sender: FDA-Public Use
  Company Number: US-ELI_LILLY_AND_COMPANY-US201102000020

PATIENT
  Sex: Female

DRUGS (4)
  1. HUMALOG [Suspect]
     Indication: DIABETES MELLITUS
     Dosage: 17 U, EACH MORNING
  2. HUMALOG [Suspect]
     Dosage: 11 U, OTHER
  3. HUMALOG [Suspect]
     Dosage: 17 U, EACH EVENING
  4. HUMALOG [Suspect]
     Dosage: UNK, AS NEEDED

REACTIONS (3)
  - NERVE COMPRESSION [None]
  - SPINAL COLUMN STENOSIS [None]
  - INTERVERTEBRAL DISC DISPLACEMENT [None]
